FAERS Safety Report 22626411 (Version 1)
Quarter: 2023Q2

REPORT INFORMATION
  Report Type: Spontaneous
  Country: US (occurrence: US)
  Receive Date: 20230621
  Receipt Date: 20230621
  Transmission Date: 20230721
  Serious: Yes (Hospitalization)
  Sender: FDA-Public Use
  Company Number: US-KARYOPHARM-2023KPT001475

PATIENT

DRUGS (16)
  1. XPOVIO [Suspect]
     Active Substance: SELINEXOR
     Indication: Plasma cell myeloma
     Dosage: 40 MG, WEEKLY
     Route: 048
     Dates: end: 20230606
  2. ACYCLOVIR [Concomitant]
     Active Substance: ACYCLOVIR
  3. ATORVASTATIN [Concomitant]
     Active Substance: ATORVASTATIN
  4. BACLOFEN [Concomitant]
     Active Substance: BACLOFEN
  5. CORLANOR [Concomitant]
     Active Substance: IVABRADINE HYDROCHLORIDE
  6. DEXAMETHASONE [Concomitant]
     Active Substance: DEXAMETHASONE
  7. DULOXETINE [Concomitant]
     Active Substance: DULOXETINE
  8. FENOFIBRATE [Concomitant]
     Active Substance: FENOFIBRATE
  9. FENTANYL [Concomitant]
     Active Substance: FENTANYL
  10. HUMULIN N [Concomitant]
     Active Substance: INSULIN HUMAN
  11. HYDROCORTISONE [Concomitant]
     Active Substance: HYDROCORTISONE
  12. LEVOTHYROXINE [Concomitant]
     Active Substance: LEVOTHYROXINE
  13. PLAVIX [Concomitant]
     Active Substance: CLOPIDOGREL BISULFATE
  14. PREGABALIN [Concomitant]
     Active Substance: PREGABALIN
  15. TRULICITY [Concomitant]
     Active Substance: DULAGLUTIDE
  16. ZOFRAN [Concomitant]
     Active Substance: ONDANSETRON HYDROCHLORIDE

REACTIONS (2)
  - White blood cell count increased [Unknown]
  - Drug ineffective [Unknown]

NARRATIVE: CASE EVENT DATE: 20230606
